FAERS Safety Report 7833593-2 (Version None)
Quarter: 2011Q4

REPORT INFORMATION
  Report Type: 
  Country: None (occurrence: None)
  Receive Date: 20111024
  Receipt Date: 20111012
  Transmission Date: 20120403
  Serious: Yes (Other)
  Sender: FDA-Public Use
  Company Number: JP-BRISTOL-MYERS SQUIBB COMPANY-16176109

PATIENT
  Age: 40 Year
  Sex: Female

DRUGS (4)
  1. MITOMYCIN [Suspect]
     Indication: MALIGNANT MELANOMA
     Dosage: INJECTION
  2. DACARBAZINE [Suspect]
     Indication: MALIGNANT MELANOMA
     Dosage: INJECTIONL; ROUTE OF ADMIN: IJ
  3. NIMUSTINE HCL [Suspect]
     Indication: MALIGNANT MELANOMA
     Dosage: INJECTION; ROUTE OF ADMIN: IJ.
  4. VINCRISTINE SULFATE [Suspect]
     Indication: MALIGNANT MELANOMA
     Dosage: ROUTE OF ADMIN: IJ.

REACTIONS (1)
  - CYSTOID MACULAR OEDEMA [None]
